FAERS Safety Report 18452522 (Version 1)
Quarter: 2020Q4

REPORT INFORMATION
  Report Type: Spontaneous
  Country: US (occurrence: US)
  Receive Date: 20201102
  Receipt Date: 20201102
  Transmission Date: 20210114
  Serious: No
  Sender: FDA-Public Use
  Company Number: US-ELI_LILLY_AND_COMPANY-US202010004575

PATIENT
  Sex: Male

DRUGS (2)
  1. EMGALITY [Suspect]
     Active Substance: GALCANEZUMAB-GNLM
     Indication: MIGRAINE
     Dosage: 120 MG, UNKNOWN
     Route: 058
  2. UBROGEPANT [Concomitant]
     Active Substance: UBROGEPANT
     Indication: MIGRAINE
     Dosage: UNK

REACTIONS (2)
  - Migraine [Not Recovered/Not Resolved]
  - Product dose omission issue [Unknown]
